FAERS Safety Report 8953321 (Version 1)
Quarter: 2012Q4

REPORT INFORMATION
  Report Type: 
  Country: US (occurrence: US)
  Receive Date: 20121206
  Receipt Date: 20121206
  Transmission Date: 20130627
  Serious: No
  Sender: FDA-Public Use
  Company Number: US-009507513-1212USA001424

PATIENT
  Sex: Female

DRUGS (3)
  1. VICTRELIS [Suspect]
     Indication: HEPATITIS C
     Dosage: 800 mg, tid
     Route: 048
     Dates: start: 20121009
  2. PEGASYS [Suspect]
     Indication: HEPATITIS C
     Dosage: UNK
  3. RIBAPAK [Suspect]
     Indication: HEPATITIS C

REACTIONS (1)
  - Dyspnoea [Unknown]
